FAERS Safety Report 5792318-5 (Version None)
Quarter: 2008Q2

REPORT INFORMATION
  Report Type: 
  Country: None (occurrence: None)
  Receive Date: 20080623
  Receipt Date: 20080606
  Transmission Date: 20081010
  Serious: Yes (Hospitalization, Disabling, Other)
  Sender: FDA-Public Use
  Company Number: 2008EU000749

PATIENT
  Age: 70 Year
  Sex: Female
  Weight: 54 kg

DRUGS (12)
  1. PROGRAF [Suspect]
     Indication: RENAL TRANSPLANT
     Dosage: 1 MG, UID/QD, ORAL,  1 MG, BID, ORAL, 3 MG, UID/QD, ORAL, 4 MG, UID/QD, ORAL
     Route: 048
     Dates: start: 20060901, end: 20080303
  2. PROGRAF [Suspect]
     Indication: RENAL TRANSPLANT
     Dosage: 1 MG, UID/QD, ORAL,  1 MG, BID, ORAL, 3 MG, UID/QD, ORAL, 4 MG, UID/QD, ORAL
     Route: 048
     Dates: start: 20080407, end: 20080418
  3. PROGRAF [Suspect]
     Indication: RENAL TRANSPLANT
     Dosage: 1 MG, UID/QD, ORAL,  1 MG, BID, ORAL, 3 MG, UID/QD, ORAL, 4 MG, UID/QD, ORAL
     Route: 048
     Dates: start: 20080418, end: 20080428
  4. PROGRAF [Suspect]
     Indication: RENAL TRANSPLANT
     Dosage: 1 MG, UID/QD, ORAL,  1 MG, BID, ORAL, 3 MG, UID/QD, ORAL, 4 MG, UID/QD, ORAL
     Route: 048
     Dates: start: 20070429, end: 20080528
  5. RAPAMUNE [Concomitant]
  6. IRBESARTAN [Concomitant]
  7. TEMERIT (NEBIVOLOL) [Concomitant]
  8. AMLODIPINE BESYLATE [Concomitant]
  9. ARANESP [Concomitant]
  10. CITALOPRAM HYDROBROMIDE [Concomitant]
  11. KARDEGIC (ACETYLSALICYLATE LYSINE) [Concomitant]
  12. NIZORAL [Concomitant]

REACTIONS (13)
  - ARTHRITIS [None]
  - BLOOD CREATININE INCREASED [None]
  - CONFUSIONAL STATE [None]
  - DEAFNESS [None]
  - DRUG INTERACTION [None]
  - DRUG LEVEL INCREASED [None]
  - ERECTILE DYSFUNCTION [None]
  - FEELING HOT [None]
  - JOINT EFFUSION [None]
  - PULMONARY OEDEMA [None]
  - SEPSIS [None]
  - TREMOR [None]
  - URINARY TRACT INFECTION FUNGAL [None]
